FAERS Safety Report 8323371-2 (Version None)
Quarter: 2012Q2

REPORT INFORMATION
  Report Type: 
  Country: None (occurrence: None)
  Receive Date: 20120430
  Receipt Date: 20120424
  Transmission Date: 20120825
  Serious: Yes (Life-Threatening, Hospitalization)
  Sender: FDA-Public Use
  Company Number: US-MERCK-1203USA01738

PATIENT
  Age: 54 Year
  Sex: Male
  Weight: 64 kg

DRUGS (4)
  1. SINGULAIR [Suspect]
     Indication: ASTHMA
     Route: 048
     Dates: start: 20090101, end: 20120301
  2. ADVAIR DISKUS 100/50 [Concomitant]
     Route: 065
  3. XOLAIR [Concomitant]
     Route: 065
  4. SINGULAIR [Suspect]
     Indication: HYPERSENSITIVITY
     Route: 048
     Dates: start: 20090101, end: 20120301

REACTIONS (1)
  - ALLERGIC GRANULOMATOUS ANGIITIS [None]
